FAERS Safety Report 19071040 (Version 1)
Quarter: 2021Q1

REPORT INFORMATION
  Report Type: Spontaneous
  Country: US (occurrence: US)
  Receive Date: 20210330
  Receipt Date: 20210330
  Transmission Date: 20210420
  Serious: Yes (Death)
  Sender: FDA-Public Use
  Company Number: US-ROCHE-2800096

PATIENT
  Age: 16 Year
  Sex: Male

DRUGS (1)
  1. AVASTIN [Suspect]
     Active Substance: BEVACIZUMAB
     Indication: BRAIN NEOPLASM MALIGNANT
     Dosage: STRENGTH: 25 MG/ML
     Dates: start: 20210319

REACTIONS (1)
  - Death [Fatal]

NARRATIVE: CASE EVENT DATE: 20210321
